FAERS Safety Report 11554181 (Version 3)
Quarter: 2015Q4

REPORT INFORMATION
  Report Type: Spontaneous
  Country: US (occurrence: US)
  Receive Date: 20150925
  Receipt Date: 20151014
  Transmission Date: 20160304
  Serious: Yes (Hospitalization)
  Sender: FDA-Public Use
  Company Number: US-ACTELION PHARMACEUTICALS US, INC.-A-NJ2015-124258

PATIENT
  Age: 44 Year
  Sex: Female

DRUGS (3)
  1. VELETRI [Suspect]
     Active Substance: EPOPROSTENOL
     Indication: PULMONARY ARTERIAL HYPERTENSION
     Dosage: 38.4 NG/KG, PER MIN
     Route: 042
     Dates: start: 20150311
  2. SILDENAFIL. [Concomitant]
     Active Substance: SILDENAFIL
     Indication: PULMONARY ARTERIAL HYPERTENSION
  3. XARELTO [Concomitant]
     Active Substance: RIVAROXABAN

REACTIONS (10)
  - Chest discomfort [Unknown]
  - Pyrexia [Unknown]
  - Condition aggravated [Unknown]
  - Headache [Unknown]
  - Pulmonary arterial hypertension [Unknown]
  - Dyspnoea [Unknown]
  - Pneumonia [Unknown]
  - Influenza like illness [Unknown]
  - Chills [Unknown]
  - Chest pain [Unknown]
